FAERS Safety Report 24315680 (Version 6)
Quarter: 2025Q1

REPORT INFORMATION
  Report Type: Spontaneous
  Country: US (occurrence: US)
  Receive Date: 20240913
  Receipt Date: 20250303
  Transmission Date: 20250408
  Serious: Yes (Hospitalization, Other)
  Sender: CATALYST PHARMA
  Company Number: US-CATALYSTPHARMACEUTICALPARTNERS-EC-2024-164832

PATIENT
  Sex: Male

DRUGS (3)
  1. FYCOMPA [Suspect]
     Active Substance: PERAMPANEL
     Indication: Product used for unknown indication
     Dosage: 2 MILLIGRAM(S), 1 IN 1 DAY
     Route: 048
  2. FYCOMPA [Suspect]
     Active Substance: PERAMPANEL
     Dosage: TAKE 1 TABLET EVERY NIGHT AT BEDTIME
     Route: 048
  3. UNSPECIFIED INGREDIENT [Suspect]
     Active Substance: UNSPECIFIED INGREDIENT
     Indication: Seizure
     Route: 065

REACTIONS (17)
  - Hospitalisation [Unknown]
  - Chronic obstructive pulmonary disease [Unknown]
  - Seizure [Not Recovered/Not Resolved]
  - Condition aggravated [Not Recovered/Not Resolved]
  - Epilepsy [Not Recovered/Not Resolved]
  - Hemianopia [Unknown]
  - Alcoholic seizure [Not Recovered/Not Resolved]
  - Loss of consciousness [Unknown]
  - Obstructive airways disorder [Unknown]
  - Bedridden [Unknown]
  - Pain [Unknown]
  - Impaired driving ability [Unknown]
  - Bradykinesia [Unknown]
  - Impaired work ability [Not Recovered/Not Resolved]
  - Memory impairment [Unknown]
  - Fall [Unknown]
  - Product dose omission in error [Unknown]

NARRATIVE: CASE EVENT DATE: 20240101
